FAERS Safety Report 5505747-1 (Version None)
Quarter: 2007Q4

REPORT INFORMATION
  Report Type: 
  Country: None (occurrence: None)
  Receive Date: 20071102
  Receipt Date: 20071022
  Transmission Date: 20080405
  Serious: Yes (Other)
  Sender: FDA-Public Use
  Company Number: GB-PFIZER INC-2007088816

PATIENT
  Sex: Female

DRUGS (1)
  1. CHAMPIX [Suspect]
     Route: 048

REACTIONS (3)
  - HYPERHIDROSIS [None]
  - INSOMNIA [None]
  - MENORRHAGIA [None]
